FAERS Safety Report 6156192-X (Version None)
Quarter: 2009Q2

REPORT INFORMATION
  Report Type: 
  Country: None (occurrence: None)
  Receive Date: 20090415
  Receipt Date: 20090408
  Transmission Date: 20091009
  Serious: Yes (Other)
  Sender: FDA-Public Use
  Company Number: DE-AMGEN-UK335782

PATIENT
  Sex: Female

DRUGS (9)
  1. MIMPARA [Suspect]
     Indication: HYPERPARATHYROIDISM SECONDARY
     Route: 048
     Dates: start: 20060821
  2. METOPROLOL TARTRATE [Concomitant]
     Route: 048
     Dates: start: 20030929
  3. ALLOPURINOL [Concomitant]
     Route: 048
     Dates: start: 20050602
  4. LEVOTHYROXINE SODIUM [Concomitant]
     Route: 048
     Dates: start: 20050602
  5. NEXIUM [Concomitant]
     Route: 048
     Dates: start: 20051115
  6. BONDIOL [Concomitant]
     Route: 048
     Dates: start: 20081210
  7. CALCIUM ACETATE [Concomitant]
     Route: 048
     Dates: start: 20060114
  8. PHOSPHONORM [Concomitant]
     Route: 048
     Dates: start: 20060213
  9. ERYPO [Concomitant]
     Route: 042
     Dates: start: 20051219

REACTIONS (3)
  - BLOOD PARATHYROID HORMONE INCREASED [None]
  - PARATHYROID TUMOUR BENIGN [None]
  - THERAPEUTIC RESPONSE DECREASED [None]
